FAERS Safety Report 8281550-7 (Version None)
Quarter: 2012Q2

REPORT INFORMATION
  Report Type: 
  Country: None (occurrence: None)
  Receive Date: 20120410
  Receipt Date: 20120326
  Transmission Date: 20120825
  Serious: Yes (Life-Threatening)
  Sender: FDA-Public Use
  Company Number: DSM-2012-00371

PATIENT
  Age: 71 Year
  Sex: Female

DRUGS (5)
  1. ASPIRIN [Concomitant]
  2. BENDROFLUMETHIAZIDE (BENDROFLUMETHIAZIDE) (BENDROFLUMETHIAZIDE) [Concomitant]
  3. SLOZEM (DILTIAZEM HYDROCHLORIDE) (DILTIAZEM HYDROCHLORIDE) [Concomitant]
  4. PRAVASTATIN [Concomitant]
  5. OLMESARTAN MEDOXOMIL [Suspect]
     Indication: PRODUCT USED FOR UNKNOWN INDICATION
     Dosage: ORAL
     Route: 048
     Dates: start: 20040401

REACTIONS (1)
  - SKIN CANCER [None]
